FAERS Safety Report 6402501-3 (Version None)
Quarter: 2009Q4

REPORT INFORMATION
  Report Type: 
  Country: None (occurrence: None)
  Receive Date: 20091015
  Receipt Date: 20091005
  Transmission Date: 20100525
  Serious: Yes (Life-Threatening)
  Sender: FDA-Public Use
  Company Number: JP-ABBOTT-09P-087-0593076-00

PATIENT
  Sex: Male

DRUGS (12)
  1. CLARITHROMYCIN [Suspect]
     Indication: HELICOBACTER INFECTION
     Route: 048
     Dates: start: 20090727, end: 20090730
  2. AMOXICILLIN [Suspect]
     Indication: HELICOBACTER INFECTION
     Route: 048
     Dates: start: 20090727, end: 20090730
  3. BLOPRESS [Concomitant]
     Indication: HYPERTENSION
     Route: 048
     Dates: start: 20080601
  4. HALFDIGOXIN [Concomitant]
     Indication: ATRIAL FIBRILLATION
     Route: 048
     Dates: start: 20030901
  5. LASIX [Concomitant]
     Indication: CARDIAC FAILURE CONGESTIVE
     Route: 048
     Dates: start: 19980101
  6. ASPIRIN [Concomitant]
     Indication: ATRIAL FIBRILLATION
     Route: 048
     Dates: start: 20030901
  7. WARFARIN SODIUM [Concomitant]
     Indication: ATRIAL FIBRILLATION
     Route: 048
     Dates: start: 19980101
  8. LIPITOR [Concomitant]
     Indication: HYPERCHOLESTEROLAEMIA
     Route: 048
     Dates: start: 20080601
  9. CONIEL [Concomitant]
     Indication: HYPERTENSION
     Route: 048
     Dates: start: 20080601
  10. AMARYL [Concomitant]
     Indication: DIABETES MELLITUS
     Route: 048
     Dates: start: 20050101
  11. COMELIAN [Concomitant]
     Indication: ANGINA PECTORIS
     Route: 048
     Dates: start: 20030901
  12. GASTROM [Concomitant]
     Indication: GASTRIC ULCER
     Dosage: 1.5GM, 2 IN 1 DAY
     Dates: start: 20080601

REACTIONS (5)
  - DIZZINESS [None]
  - HYPERKALAEMIA [None]
  - LOSS OF CONSCIOUSNESS [None]
  - PHOTOPHOBIA [None]
  - RENAL FAILURE ACUTE [None]
